FAERS Safety Report 4803027-0 (Version None)
Quarter: 2005Q4

REPORT INFORMATION
  Report Type: 
  Country: None (occurrence: None)
  Receive Date: 20051019
  Receipt Date: 20050909
  Transmission Date: 20060501
  Serious: Yes (Life-Threatening, Other)
  Sender: FDA-Public Use
  Company Number: US-GLAXOSMITHKLINE-A0573580A

PATIENT
  Age: 48 Year
  Sex: Female
  Weight: 99.1 kg

DRUGS (6)
  1. AMOXIL [Suspect]
     Indication: TOOTH ABSCESS
     Dosage: 500MG THREE TIMES PER DAY
     Route: 048
  2. THYROID TAB [Concomitant]
     Dosage: 120MG PER DAY
  3. ADVAIR DISKUS 100/50 [Concomitant]
  4. ASTELIN [Concomitant]
     Dosage: 2SPR TWICE PER DAY
  5. ZYRTEC [Concomitant]
     Dosage: 10MG PER DAY
  6. LEXAPRO [Concomitant]
     Dosage: 10MG PER DAY

REACTIONS (10)
  - BRONCHOSPASM [None]
  - DYSPNOEA [None]
  - ERYTHEMA [None]
  - FACE OEDEMA [None]
  - HYPERSENSITIVITY [None]
  - HYPOTENSION [None]
  - LARYNGEAL OEDEMA [None]
  - RASH [None]
  - SYNCOPE [None]
  - URTICARIA [None]
